FAERS Safety Report 5110234-9 (Version None)
Quarter: 2006Q3

REPORT INFORMATION
  Report Type: 
  Country: None (occurrence: None)
  Receive Date: 20060921
  Receipt Date: 20060830
  Transmission Date: 20061208
  Serious: Yes (Hospitalization)
  Sender: FDA-Public Use
  Company Number: US-ROCHE-461619

PATIENT
  Age: 56 Year
  Sex: Female

DRUGS (2)
  1. PEGASYS [Suspect]
     Indication: HEPATITIS C
     Route: 065
     Dates: start: 20050908, end: 20060703
  2. RIBAVIRIN [Suspect]
     Indication: HEPATITIS C
     Route: 065
     Dates: start: 20050908, end: 20060703

REACTIONS (6)
  - ABSCESS [None]
  - ANAEMIA [None]
  - HEADACHE [None]
  - NEUTROPHILIA [None]
  - PLEURAL ADHESION [None]
  - WEGENER'S GRANULOMATOSIS [None]
